FAERS Safety Report 23658530 (Version 1)
Quarter: 2024Q1

REPORT INFORMATION
  Report Type: Spontaneous
  Country: CN (occurrence: CN)
  Receive Date: 20240321
  Receipt Date: 20240321
  Transmission Date: 20240410
  Serious: Yes (Other)
  Sender: FDA-Public Use
  Company Number: CN-PFIZER INC-PV202400036201

PATIENT
  Age: 34 Year
  Sex: Male
  Weight: 40 kg

DRUGS (6)
  1. AVIBACTAM SODIUM\CEFTAZIDIME [Suspect]
     Active Substance: AVIBACTAM SODIUM\CEFTAZIDIME
     Indication: Anti-infective therapy
     Route: 065
  2. AVIBACTAM SODIUM\CEFTAZIDIME [Suspect]
     Active Substance: AVIBACTAM SODIUM\CEFTAZIDIME
     Indication: Anti-infective therapy
     Dosage: TIME INTERVAL: 0.33333333 DAYS: 2.5 G, 3X/DAY; DISCONTINUED IN 2024
     Route: 065
     Dates: start: 20240305
  3. AZTREONAM [Suspect]
     Active Substance: AZTREONAM
     Indication: Anti-infective therapy
     Dosage: TIME INTERVAL: 0.33333333 DAYS: 0.5 G, 3X/DAY; DISCONTINUED IN 2024
     Route: 041
     Dates: start: 20240305
  4. AZTREONAM [Suspect]
     Active Substance: AZTREONAM
     Indication: Anti-infective therapy
     Route: 065
  5. SODIUM CHLORIDE [Concomitant]
     Active Substance: SODIUM CHLORIDE
     Indication: Vehicle solution use
     Dosage: TIME INTERVAL: 0.33333333 DAYS: 250 ML, 3X/DAY
     Route: 041
     Dates: start: 20240305, end: 20240306
  6. SODIUM CHLORIDE [Concomitant]
     Active Substance: SODIUM CHLORIDE
     Indication: Vehicle solution use
     Dosage: TIME INTERVAL: 0.33333333 DAYS: 30 ML, 3X/DAY
     Route: 065
     Dates: start: 20240305, end: 20240306

REACTIONS (4)
  - Gastrointestinal disorder [Recovering/Resolving]
  - Vomiting [Recovering/Resolving]
  - Diarrhoea [Recovering/Resolving]
  - Nausea [Recovering/Resolving]

NARRATIVE: CASE EVENT DATE: 20240305
